FAERS Safety Report 8685334 (Version 4)
Quarter: 2013Q1

REPORT INFORMATION
  Report Type: Spontaneous
  Country: US (occurrence: US)
  Receive Date: 20120726
  Receipt Date: 20130104
  Transmission Date: 20140127
  Serious: No
  Sender: FDA-Public Use
  Company Number: US-ASTRAZENECA-2011SE50178

PATIENT
  Age: 69 Year
  Sex: Female
  Weight: 56.7 kg

DRUGS (14)
  1. SEROQUEL [Suspect]
     Indication: BIPOLAR DISORDER
     Route: 048
     Dates: start: 2010
  2. SEROQUEL [Suspect]
     Indication: BIPOLAR DISORDER
     Dosage: CUTTING IN HALF
     Route: 048
  3. LANOTRIGINE [Concomitant]
     Indication: MOOD SWINGS
  4. CLONAZEPAM [Concomitant]
     Indication: ANXIETY
  5. LEVOTHYROID [Concomitant]
     Indication: THYROID DISORDER
  6. LITHIUM [Concomitant]
     Indication: BIPOLAR DISORDER
  7. AMLODIPINE [Concomitant]
     Indication: HYPERTENSION
  8. LEVOTHYROXINE [Concomitant]
     Indication: HYPOTHYROIDISM
  9. OTC SINUS MEDICATION [Concomitant]
     Indication: SINUS DISORDER
  10. OTC CHEST CONGESTION MEDICATION [Concomitant]
     Indication: PULMONARY CONGESTION
  11. VITAMINS [Concomitant]
  12. VITAMIN D-3 [Concomitant]
     Indication: VITAMIN SUPPLEMENTATION
  13. FISH OIL [Concomitant]
     Indication: VITAMIN SUPPLEMENTATION
  14. LAMICTAL [Concomitant]
     Indication: MOOD SWINGS

REACTIONS (14)
  - Hypomania [Unknown]
  - Mania [Unknown]
  - Anxiety [Unknown]
  - Feeling hot [Unknown]
  - Thinking abnormal [Not Recovered/Not Resolved]
  - Memory impairment [Not Recovered/Not Resolved]
  - Feeling abnormal [Not Recovered/Not Resolved]
  - Emotional distress [Not Recovered/Not Resolved]
  - Malaise [Not Recovered/Not Resolved]
  - Agitation [Unknown]
  - Crying [Recovered/Resolved]
  - Stress [Unknown]
  - Off label use [Unknown]
  - Drug dose omission [Unknown]
